FAERS Safety Report 9008337 (Version 2)
Quarter: 2014Q1

REPORT INFORMATION
  Report Type: Report from Study
  Country: NL (occurrence: NL)
  Receive Date: 20130111
  Receipt Date: 20140321
  Transmission Date: 20141002
  Serious: Yes (Death, Disabling)
  Sender: FDA-Public Use
  Company Number: PHHY2013NL002333

PATIENT
  Sex: Female

DRUGS (4)
  1. ZOMETA [Suspect]
     Indication: BREAST CANCER METASTATIC
     Dosage: 4 MG/100ML, PER 28 DAYS
     Route: 042
  2. ZOMETA [Suspect]
     Dosage: 4 MG/100 ML, PER 28 DAYS
     Route: 042
     Dates: start: 20120813
  3. ZOMETA [Suspect]
     Dosage: 4 MG/100ML, PER 28 DAYS
     Route: 042
     Dates: start: 20121203
  4. ZOMETA [Suspect]
     Dosage: 4 MG/100ML, PER 28 DAYS
     Route: 042
     Dates: start: 20121231

REACTIONS (3)
  - Terminal state [Fatal]
  - Cachexia [Fatal]
  - Somnolence [Fatal]
